FAERS Safety Report 4738257-X (Version None)
Quarter: 2005Q3

REPORT INFORMATION
  Report Type: 
  Country: None (occurrence: None)
  Receive Date: 20050803
  Receipt Date: 20050719
  Transmission Date: 20060218
  Serious: No
  Sender: FDA-Public Use
  Company Number: 11925

PATIENT
  Age: 8 Year
  Sex: Male

DRUGS (5)
  1. METHOTREXATE [Suspect]
     Indication: RHEUMATOID ARTHRITIS
     Dosage: 7.5  MG WEEKLY/12.5 MG WEEKLY/22 MG WEEKLY
     Route: 058
     Dates: start: 19980818, end: 19981028
  2. METHOTREXATE [Suspect]
     Indication: RHEUMATOID ARTHRITIS
     Dosage: 7.5  MG WEEKLY/12.5 MG WEEKLY/22 MG WEEKLY
     Route: 058
     Dates: start: 19901029
  3. CALCICHEW [Concomitant]
  4. PREDNISOLONE [Concomitant]
  5. IMMUNOGLOBULINS [Concomitant]

REACTIONS (1)
  - BONE DENSITY DECREASED [None]
